FAERS Safety Report 4859952-8 (Version None)
Quarter: 2005Q4

REPORT INFORMATION
  Report Type: 
  Country: None (occurrence: None)
  Receive Date: 20051219
  Receipt Date: 20051207
  Transmission Date: 20060501
  Serious: Yes (Hospitalization)
  Sender: FDA-Public Use
  Company Number: FR-BRISTOL-MYERS SQUIBB COMPANY-13218920

PATIENT
  Age: 40 Year
  Sex: Female
  Weight: 70 kg

DRUGS (6)
  1. ENDOXAN [Suspect]
     Indication: MULTIPLE SCLEROSIS
     Route: 042
     Dates: start: 20041025, end: 20050929
  2. UROMITEXAN INJ [Suspect]
     Indication: PROPHYLAXIS
     Route: 042
     Dates: start: 20030727, end: 20050929
  3. SOLU-MEDROL [Concomitant]
     Dates: start: 20030727, end: 20050929
  4. MANTADIX [Concomitant]
     Dates: start: 20050626
  5. HEXAQUINE [Concomitant]
     Dates: start: 20030707
  6. NEURONTIN [Concomitant]
     Dates: start: 20040420

REACTIONS (2)
  - LIVEDO RETICULARIS [None]
  - OEDEMA PERIPHERAL [None]
